FAERS Safety Report 12088522 (Version 2)
Quarter: 2021Q1

REPORT INFORMATION
  Report Type: Spontaneous
  Country: CA (occurrence: CA)
  Receive Date: 20160218
  Receipt Date: 20210212
  Transmission Date: 20210419
  Serious: Yes (Other)
  Sender: FDA-Public Use
  Company Number: CA-009507513-1602CAN007970

PATIENT
  Age: 62 Year
  Sex: Male
  Weight: 111.8 kg

DRUGS (7)
  1. PREVACID [Concomitant]
     Active Substance: LANSOPRAZOLE
     Dosage: 30MG DAILY P.O. PRN
     Route: 048
     Dates: start: 20080805
  2. EZETROL [Suspect]
     Active Substance: EZETIMIBE
     Dosage: 10MG DAILY PO
     Route: 048
     Dates: start: 20150722, end: 20150729
  3. CRESTOR [Concomitant]
     Active Substance: ROSUVASTATIN CALCIUM
     Dosage: TABLET, 20MG DAILY P.O.
     Route: 048
     Dates: start: 20101011
  4. CIPRALEX [Concomitant]
     Active Substance: ESCITALOPRAM OXALATE
     Dosage: TABLET, 5MG DAILY, P.O.
     Route: 048
     Dates: start: 20120912
  5. EZETROL [Suspect]
     Active Substance: EZETIMIBE
     Dosage: UNK
     Route: 065
  6. NAPROXEN. [Concomitant]
     Active Substance: NAPROXEN
     Dosage: 500MG BID P.O. PRN
     Route: 048
     Dates: start: 20141204
  7. EZETROL [Suspect]
     Active Substance: EZETIMIBE
     Indication: HYPERLIPIDAEMIA
     Dosage: 10MG DAILY PO
     Route: 048
     Dates: start: 20110302, end: 20141204

REACTIONS (4)
  - Tachycardia [Recovered/Resolved]
  - Tachycardia [Unknown]
  - Palpitations [Unknown]
  - Palpitations [Recovered/Resolved]

NARRATIVE: CASE EVENT DATE: 20150722
